FAERS Safety Report 6510242-7 (Version None)
Quarter: 2009Q4

REPORT INFORMATION
  Report Type: 
  Country: None (occurrence: None)
  Receive Date: 20091222
  Receipt Date: 20091210
  Transmission Date: 20100525
  Serious: Yes (Other)
  Sender: FDA-Public Use
  Company Number: BR-ELI_LILLY_AND_COMPANY-BR200912002602

PATIENT
  Sex: Male

DRUGS (6)
  1. BYETTA [Suspect]
     Indication: TYPE 2 DIABETES MELLITUS
     Dosage: 10 UG, 2/D
     Route: 058
     Dates: start: 20090626, end: 20091027
  2. GLIMEPIRIDE [Concomitant]
     Dosage: 2 MG, DAILY (1/D)
     Route: 065
  3. MICARDIS [Concomitant]
     Dosage: 40 MG, DAILY (1/D)
     Route: 065
  4. GLIFAGE [Concomitant]
     Dosage: 850 MG, 2/D
     Route: 065
  5. LIPITOR [Concomitant]
     Dosage: 20 MG, DAILY (1/D)
  6. RASILEZ [Concomitant]
     Dosage: 300 MG, DAILY (1/D)
     Route: 065

REACTIONS (1)
  - DIABETIC RETINOPATHY [None]
